FAERS Safety Report 5224068-8 (Version None)
Quarter: 2007Q1

REPORT INFORMATION
  Report Type: 
  Country: None (occurrence: None)
  Receive Date: 20070130
  Receipt Date: 20070119
  Transmission Date: 20070707
  Serious: Yes (Other)
  Sender: FDA-Public Use
  Company Number: HQWYE040219JAN07

PATIENT
  Sex: Male

DRUGS (1)
  1. ANCARON [Suspect]
     Dosage: UNSPECIFIED
     Route: 048

REACTIONS (2)
  - DERMATITIS BULLOUS [None]
  - OEDEMA PERIPHERAL [None]
